FAERS Safety Report 6580858-0 (Version None)
Quarter: 2010Q1

REPORT INFORMATION
  Report Type: 
  Country: None (occurrence: None)
  Receive Date: 20100215
  Receipt Date: 20100208
  Transmission Date: 20100710
  Serious: Yes (Other)
  Sender: FDA-Public Use
  Company Number: US-ELI_LILLY_AND_COMPANY-US201002002082

PATIENT
  Sex: Female
  Weight: 77.8 kg

DRUGS (9)
  1. GEMCITABINE HCL [Suspect]
     Indication: RENAL CELL CARCINOMA
     Dosage: 1000 MG/M2, OTHER
     Route: 042
     Dates: start: 20091230, end: 20100106
  2. SUNITINIB MALATE [Suspect]
     Indication: RENAL CELL CARCINOMA
     Dosage: 37.5 MG, DAILY (1/D)
     Route: 048
     Dates: start: 20091230, end: 20100112
  3. ATENOLOL [Concomitant]
     Dosage: 50 MG, DAILY (1/D)
     Dates: start: 20091222
  4. COMPAZINE [Concomitant]
     Dosage: 10 MG, EVERY 6 HRS
     Dates: start: 20091231
  5. HYDROCHLOROTHIAZIDE [Concomitant]
     Dosage: 25 MG, DAILY (1/D)
     Dates: start: 20091222
  6. KLONOPIN [Concomitant]
     Dosage: 0.5 MG, 2/D
     Dates: start: 20091230
  7. NORVASC [Concomitant]
     Dosage: 10 MG, DAILY (1/D)
     Dates: start: 20100106
  8. ZOLOFT [Concomitant]
     Dosage: 50 MG, DAILY (1/D)
     Dates: start: 20091230
  9. APAP TAB [Concomitant]
     Indication: PYREXIA
     Dates: start: 20100116

REACTIONS (3)
  - BLOOD PHOSPHORUS DECREASED [None]
  - BLOOD POTASSIUM DECREASED [None]
  - BLOOD SODIUM DECREASED [None]
